FAERS Safety Report 23657977 (Version 1)
Quarter: 2024Q1

REPORT INFORMATION
  Report Type: Spontaneous
  Country: US (occurrence: None)
  Receive Date: 20240320
  Receipt Date: 20240320
  Transmission Date: 20240410
  Serious: Yes (Other)
  Sender: FDA-Public Use
  Company Number: None

PATIENT
  Age: 69 Year
  Sex: Female
  Weight: 63.5 kg

DRUGS (4)
  1. RIBOCICLIB [Suspect]
     Active Substance: RIBOCICLIB
     Indication: Breast cancer
     Dosage: FREQUENCY : DAILY;?
     Route: 048
     Dates: start: 20231214, end: 20240307
  2. LETROZOLE [Concomitant]
     Active Substance: LETROZOLE
     Dates: start: 20231125
  3. LEVOTHYROXINE [Concomitant]
     Active Substance: LEVOTHYROXINE\LEVOTHYROXINE SODIUM
     Dates: start: 20210222
  4. RIVAROXABAN [Concomitant]
     Active Substance: RIVAROXABAN
     Dates: start: 20231127

REACTIONS (2)
  - Breast cancer metastatic [None]
  - Drug-induced liver injury [None]

NARRATIVE: CASE EVENT DATE: 20240307
